FAERS Safety Report 9495675 (Version 6)
Quarter: 2014Q1

REPORT INFORMATION
  Report Type: Report from Study
  Country: DE (occurrence: DE)
  Receive Date: 20130903
  Receipt Date: 20140310
  Transmission Date: 20141002
  Serious: Yes (Hospitalization, Other)
  Sender: FDA-Public Use
  Company Number: DE-BRISTOL-MYERS SQUIBB COMPANY-19226752

PATIENT
  Age: 75 Year
  Sex: Male
  Weight: 79 kg

DRUGS (15)
  1. IPILIMUMAB [Suspect]
     Indication: MALIGNANT MELANOMA
     Dosage: 1DF=237 UNITS NOS?LAST DOSE:13JUN13
     Route: 042
     Dates: start: 20130319, end: 20130613
  2. STALEVO [Concomitant]
  3. ARCOXIA [Concomitant]
  4. MOVICOL [Concomitant]
  5. CAPROS [Concomitant]
  6. SIFROL [Concomitant]
  7. GLIMEPIRIDE [Concomitant]
     Dates: start: 20120101
  8. LEVOTHYROXINE [Concomitant]
     Dates: start: 20120101
  9. METFORMIN [Concomitant]
     Dates: start: 20120101
  10. PANTOZOL [Concomitant]
     Dates: start: 20120101
  11. NYSTADERM [Concomitant]
     Dosage: 1 DF=4 NO UNITS
     Dates: start: 20130409
  12. LANTUS [Concomitant]
  13. MESALAZINE [Concomitant]
  14. PREDNISOLONE [Concomitant]
  15. PAMIDRONATE [Concomitant]

REACTIONS (3)
  - Anaemia [Recovered/Resolved]
  - Thrombocytopenia [Recovered/Resolved]
  - General physical health deterioration [Recovered/Resolved]
